FAERS Safety Report 4512641-1 (Version None)
Quarter: 2004Q4

REPORT INFORMATION
  Report Type: 
  Country: None (occurrence: None)
  Receive Date: 20041129
  Receipt Date: 20041115
  Transmission Date: 20050328
  Serious: Yes (Death, Life-Threatening, Hospitalization)
  Sender: FDA-Public Use
  Company Number: US-MERCK-0411USA02787

PATIENT
  Age: 30 Year
  Sex: Female

DRUGS (2)
  1. CANCIDAS [Suspect]
     Route: 042
  2. [THERAPY UNSPECIFIED] [Concomitant]
     Route: 065

REACTIONS (3)
  - HEPATIC ENZYME INCREASED [None]
  - LEUKAEMIA [None]
  - SEPSIS [None]
